FAERS Safety Report 12847975 (Version 1)
Quarter: 2016Q4

REPORT INFORMATION
  Report Type: Spontaneous
  Country: US (occurrence: US)
  Receive Date: 20161014
  Receipt Date: 20161014
  Transmission Date: 20170207
  Serious: No
  Sender: FDA-Public Use
  Company Number: US-JNJFOC-20160925535

PATIENT
  Age: 96 Year
  Sex: Female
  Weight: 43.55 kg

DRUGS (1)
  1. TYLENOL REGULAR STRENGTH [Suspect]
     Active Substance: ACETAMINOPHEN
     Indication: PAIN
     Dosage: EVERY 4-5 HOURS
     Route: 048

REACTIONS (3)
  - Product difficult to swallow [Unknown]
  - Wrong technique in product usage process [Recovered/Resolved]
  - Throat irritation [Recovered/Resolved]
